FAERS Safety Report 12830989 (Version 1)
Quarter: 2016Q4

REPORT INFORMATION
  Report Type: Spontaneous
  Country: NL (occurrence: NL)
  Receive Date: 20161007
  Receipt Date: 20161007
  Transmission Date: 20170207
  Serious: Yes (Hospitalization, Other)
  Sender: FDA-Public Use
  Company Number: NL-ALLERGAN-1640898

PATIENT
  Age: 56 Year
  Sex: Male

DRUGS (9)
  1. SUCRALFATE UNK [Suspect]
     Active Substance: SUCRALFATE
     Indication: OESOPHAGITIS
     Dosage: 1 DF, SINGLE
     Route: 048
     Dates: start: 20100615, end: 20100615
  2. CARBOPLATIN. [Suspect]
     Active Substance: CARBOPLATIN
     Indication: OESOPHAGEAL CARCINOMA
     Dosage: 10 MG/ML, UNK
     Dates: end: 2010
  3. DEPAKINE [Concomitant]
     Active Substance: VALPROATE SODIUM
     Indication: PRODUCT USED FOR UNKNOWN INDICATION
     Dosage: 500 MG, QD
     Route: 065
  4. PRAVASTATIN. [Concomitant]
     Active Substance: PRAVASTATIN
     Indication: PRODUCT USED FOR UNKNOWN INDICATION
     Dosage: 40 MG, QD
     Route: 065
  5. ULCOGANT [Suspect]
     Active Substance: SUCRALFATE
     Indication: RADIATION OESOPHAGITIS
     Dosage: 5 UNK, UNK
     Dates: start: 20100616, end: 20100616
  6. PACLITAXEL. [Suspect]
     Active Substance: PACLITAXEL
     Indication: OESOPHAGEAL CARCINOMA
     Dosage: 6 MG/ML, UNK
     Dates: start: 2010, end: 2010
  7. FOLIUMZUUR [Concomitant]
     Active Substance: FOLIC ACID
     Indication: PRODUCT USED FOR UNKNOWN INDICATION
     Dosage: 2.5 MG, QOD
     Route: 065
  8. SUCRALFATE UNK [Suspect]
     Active Substance: SUCRALFATE
     Indication: OESOPHAGEAL CARCINOMA
     Dosage: 1 G, UNK
     Route: 048
     Dates: start: 20100616, end: 20100616
  9. AMITRIPTYLINE                      /00002202/ [Concomitant]
     Active Substance: AMITRIPTYLINE
     Indication: PRODUCT USED FOR UNKNOWN INDICATION
     Dosage: 25 MG, QD
     Route: 065

REACTIONS (4)
  - Pyrexia [Recovered/Resolved]
  - Rash [Recovered/Resolved]
  - Shock [Unknown]
  - Neutropenia [Unknown]

NARRATIVE: CASE EVENT DATE: 2010
